FAERS Safety Report 7382548-3 (Version None)
Quarter: 2011Q1

REPORT INFORMATION
  Report Type: 
  Country: None (occurrence: None)
  Receive Date: 20110329
  Receipt Date: 20110323
  Transmission Date: 20110831
  Serious: Yes (Other)
  Sender: FDA-Public Use
  Company Number: US-BAYER-2011-026508

PATIENT
  Sex: Female
  Weight: 57 kg

DRUGS (4)
  1. ASPIRIN [Suspect]
  2. ALEVE (CAPLET) [Suspect]
     Indication: MYALGIA
     Dosage: 440 MG, PRN, BOTTLE COUNT 100CT
     Route: 048
     Dates: start: 20110322, end: 20110323
  3. DIOVAN [Concomitant]
  4. LIPITOR [Concomitant]

REACTIONS (6)
  - INSOMNIA [None]
  - ABDOMINAL DISCOMFORT [None]
  - RESTLESSNESS [None]
  - HEADACHE [None]
  - RESTLESS LEGS SYNDROME [None]
  - FREQUENT BOWEL MOVEMENTS [None]
